FAERS Safety Report 23370361 (Version 1)
Quarter: 2024Q1

REPORT INFORMATION
  Report Type: Spontaneous
  Country: US (occurrence: None)
  Receive Date: 20240105
  Receipt Date: 20240105
  Transmission Date: 20240410
  Serious: No
  Sender: FDA-Public Use
  Company Number: None

PATIENT
  Age: 73 Year
  Sex: Female
  Weight: 77.85 kg

DRUGS (1)
  1. LEQVIO [Suspect]
     Active Substance: INCLISIRAN SODIUM
     Dosage: OTHER FREQUENCY : EVERY 6 MONTHS;?
     Route: 058

REACTIONS (1)
  - Bronchitis [None]

NARRATIVE: CASE EVENT DATE: 20231016
